FAERS Safety Report 9863042 (Version 1)
Quarter: 2014Q1

REPORT INFORMATION
  Report Type: Report from Study
  Country: CA (occurrence: CA)
  Receive Date: 20140203
  Receipt Date: 20140203
  Transmission Date: 20141002
  Serious: Yes (Other)
  Sender: FDA-Public Use
  Company Number: CA-UCBSA-110571

PATIENT
  Sex: Female

DRUGS (6)
  1. CIMZIA [Suspect]
     Indication: RHEUMATOID ARTHRITIS
     Route: 065
  2. CIMZIA [Suspect]
     Indication: RHEUMATOID ARTHRITIS
     Dosage: 3 INJECTIONS
     Route: 065
  3. MTX [Concomitant]
     Indication: RHEUMATOID ARTHRITIS
     Route: 065
  4. OMEPRAZOLE [Concomitant]
     Indication: GASTRIC ULCER
     Route: 065
  5. NAPROXEN [Concomitant]
     Indication: ANTIINFLAMMATORY THERAPY
     Route: 065
  6. PLAQUENIL [Concomitant]
     Indication: RHEUMATOID ARTHRITIS

REACTIONS (3)
  - Breech presentation [Unknown]
  - Exposure via body fluid [Recovered/Resolved]
  - Pregnancy [Recovered/Resolved]
